FAERS Safety Report 9752175 (Version 1)
Quarter: 2013Q4

REPORT INFORMATION
  Report Type: Spontaneous
  Country: US (occurrence: None)
  Receive Date: 20131212
  Receipt Date: 20131212
  Transmission Date: 20140711
  Serious: Yes (Disabling, Other)
  Sender: FDA-Public Use
  Company Number: None

PATIENT
  Age: 52 Year
  Sex: Female
  Weight: 83.92 kg

DRUGS (1)
  1. LEXAPRO GENERIC 10MG [Suspect]
     Indication: GENERALISED ANXIETY DISORDER
     Dosage: LEXAPRO/30

REACTIONS (4)
  - Headache [None]
  - Product substitution issue [None]
  - Condition aggravated [None]
  - Generalised anxiety disorder [None]
